FAERS Safety Report 6258101-1 (Version None)
Quarter: 2009Q3

REPORT INFORMATION
  Report Type: 
  Country: None (occurrence: None)
  Receive Date: 20090702
  Receipt Date: 20090702
  Transmission Date: 20100115
  Serious: Yes (Hospitalization)
  Sender: FDA-Public Use
  Company Number: None

PATIENT
  Sex: Female
  Weight: 89.4 kg

DRUGS (4)
  1. ABILIFY [Suspect]
     Indication: SCHIZOPHRENIA
     Dosage: PO QD
     Route: 048
  2. PROZAC [Concomitant]
  3. BENAZAPRIL [Concomitant]
  4. FLURAZEPAM [Concomitant]

REACTIONS (2)
  - MOOD ALTERED [None]
  - PSYCHOTIC DISORDER [None]
